FAERS Safety Report 4938614-2 (Version None)
Quarter: 2006Q1

REPORT INFORMATION
  Report Type: 
  Country: None (occurrence: None)
  Receive Date: 20060306
  Receipt Date: 20060217
  Transmission Date: 20060701
  Serious: Yes (Life-Threatening, Hospitalization, Other)
  Sender: FDA-Public Use
  Company Number: US-0505117707

PATIENT
  Age: 38 Year
  Sex: Female
  Weight: 126.4 kg

DRUGS (13)
  1. ZYPREXA [Suspect]
     Indication: BIPOLAR DISORDER
     Dosage: SEE IMAGE
     Route: 048
     Dates: start: 20000111, end: 20000117
  2. ZYPREXA [Suspect]
     Indication: BIPOLAR DISORDER
     Dosage: SEE IMAGE
     Route: 048
     Dates: start: 20000117, end: 20031017
  3. ZYPREXA [Suspect]
     Indication: BIPOLAR DISORDER
     Dosage: SEE IMAGE
     Route: 048
     Dates: start: 20031105
  4. EFFEXOR XR [Concomitant]
  5. LITHIUM (LITHIUM) [Concomitant]
  6. GEODON [Concomitant]
  7. AMBIEN [Concomitant]
  8. DESIPRAMINE HCL [Concomitant]
  9. CLONAZEPAM [Concomitant]
  10. ZONEGRAN [Concomitant]
  11. TRAZODONE HCL [Concomitant]
  12. CEFZIL [Concomitant]
  13. PROPOXYPHENE NAPSYLATE W/ACETAMINOPHENE (DEXTROPROPOXYPHENE NAPSILATE, [Concomitant]

REACTIONS (17)
  - ANXIETY [None]
  - BLOOD CHOLESTEROL ABNORMAL [None]
  - BLOOD TRIGLYCERIDES INCREASED [None]
  - DIABETES MELLITUS NON-INSULIN-DEPENDENT [None]
  - DIABETIC NEUROPATHY [None]
  - DIZZINESS [None]
  - HYPERLIPIDAEMIA [None]
  - HYPERTENSION [None]
  - LOSS OF CONSCIOUSNESS [None]
  - MULTIPLE DRUG OVERDOSE INTENTIONAL [None]
  - NAIL DISCOLOURATION [None]
  - NEURALGIA [None]
  - PNEUMONIA ASPIRATION [None]
  - STRESS [None]
  - SUICIDE ATTEMPT [None]
  - VICTIM OF ABUSE [None]
  - WEIGHT INCREASED [None]
